FAERS Safety Report 8492394-5 (Version None)
Quarter: 2012Q3

REPORT INFORMATION
  Report Type: 
  Country: None (occurrence: None)
  Receive Date: 20120706
  Receipt Date: 20120627
  Transmission Date: 20120928
  Serious: Yes (Other)
  Sender: FDA-Public Use
  Company Number: JP-ROCHE-1073279

PATIENT
  Sex: Male

DRUGS (4)
  1. RANIBIZUMAB [Suspect]
     Dosage: SECOND INJECTION
     Route: 050
     Dates: start: 20091029
  2. RANIBIZUMAB [Suspect]
     Indication: AGE-RELATED MACULAR DEGENERATION
     Route: 050
     Dates: start: 20091001
  3. RANIBIZUMAB [Suspect]
     Dosage: THIRD INJECTION
     Route: 050
     Dates: start: 20091126
  4. VIGAMOX [Concomitant]
     Dates: start: 20091001

REACTIONS (1)
  - JOINT CONTRACTURE [None]
